FAERS Safety Report 4359918-0 (Version None)
Quarter: 2004Q2

REPORT INFORMATION
  Report Type: 
  Country: None (occurrence: None)
  Receive Date: 20040518
  Receipt Date: 20040506
  Transmission Date: 20050107
  Serious: Yes (Hospitalization, Congenital Anomaly)
  Sender: FDA-Public Use
  Company Number: PHBS2004HK06196

PATIENT
  Sex: Male
  Weight: 3 kg

DRUGS (4)
  1. DICLOFENAC SODIUM [Suspect]
     Route: 064
  2. CEPHALEXIN MONOHYDRATE [Suspect]
     Route: 064
  3. CHLORPHENIRAMINE MALEATE [Suspect]
     Route: 064
  4. PHENSEDYL [Suspect]
     Route: 064

REACTIONS (14)
  - BRADYCARDIA FOETAL [None]
  - CYANOSIS [None]
  - CYANOSIS NEONATAL [None]
  - DRUG EXPOSURE DURING PREGNANCY [None]
  - DUCTUS ARTERIOSUS PREMATURE CLOSURE [None]
  - HYPERTROPHIC CARDIOMYOPATHY [None]
  - NEONATAL DISORDER [None]
  - NEONATAL RESPIRATORY DISTRESS SYNDROME [None]
  - PERSISTENT FOETAL CIRCULATION [None]
  - PULMONARY HYPERTENSION [None]
  - RESPIRATORY DISTRESS [None]
  - SEPSIS NEONATAL [None]
  - TRICUSPID VALVE INCOMPETENCE [None]
  - VENTRICULAR HYPERTROPHY [None]
